FAERS Safety Report 11110656 (Version 1)
Quarter: 2015Q2

REPORT INFORMATION
  Report Type: Spontaneous
  Country: US (occurrence: US)
  Receive Date: 20150513
  Receipt Date: 20150513
  Transmission Date: 20150821
  Serious: Yes (Other)
  Sender: FDA-Public Use
  Company Number: US-ASTRAZENECA-2015SE42697

PATIENT
  Age: 73 Year
  Sex: Male

DRUGS (1)
  1. BYDUREON [Suspect]
     Active Substance: EXENATIDE
     Route: 058
     Dates: start: 20150501

REACTIONS (3)
  - Dyspepsia [Unknown]
  - Vomiting [Recovered/Resolved]
  - Haematemesis [Recovered/Resolved]
